FAERS Safety Report 6309258-5 (Version None)
Quarter: 2009Q3

REPORT INFORMATION
  Report Type: 
  Country: None (occurrence: None)
  Receive Date: 20090811
  Receipt Date: 20090730
  Transmission Date: 20100115
  Serious: Yes (Hospitalization)
  Sender: FDA-Public Use
  Company Number: IPS_01740_2009

PATIENT
  Age: 55 Year
  Sex: Male
  Weight: 60 kg

DRUGS (1)
  1. APO-GO (APO-GO - APOMORPHINE HYDROCHLORIDE) (NOT SPECIFIED) [Suspect]
     Indication: PARKINSON'S DISEASE
     Dosage: (4 MG PER HOUR FOR UNKNOWN SUBCUTANEOUS)
     Route: 058
     Dates: end: 20090701

REACTIONS (1)
  - RESPIRATORY DEPRESSION [None]
